FAERS Safety Report 17475898 (Version 1)
Quarter: 2020Q1

REPORT INFORMATION
  Report Type: Report from Study
  Country: FR (occurrence: FR)
  Receive Date: 20200228
  Receipt Date: 20200228
  Transmission Date: 20200409
  Serious: Yes (Other)
  Sender: FDA-Public Use
  Company Number: FR-MYLANLABS-2020M1021089

PATIENT
  Age: 69 Year
  Sex: Female

DRUGS (4)
  1. CAPECITABINE. [Suspect]
     Active Substance: CAPECITABINE
     Indication: NEUROENDOCRINE TUMOUR
     Dosage: 2000 MILLIGRAM, QD
     Route: 065
     Dates: start: 20170124, end: 20170124
  2. CAPECITABINE. [Suspect]
     Active Substance: CAPECITABINE
     Indication: NEUROENDOCRINE TUMOUR
     Dosage: 3000 MILLIGRAM, QD
     Route: 048
     Dates: start: 20160609, end: 20170124
  3. GRANOCYTE [Suspect]
     Active Substance: LENOGRASTIM
     Indication: NEUROENDOCRINE TUMOUR
     Dosage: 34 IU
     Route: 065
     Dates: start: 20161116, end: 20161118
  4. TEMODAL [Suspect]
     Active Substance: TEMOZOLOMIDE
     Indication: NEUROENDOCRINE TUMOUR
     Dosage: 300 MILLIGRAM, QD
     Route: 065
     Dates: start: 20160609, end: 20170129

REACTIONS (2)
  - Chest discomfort [Recovered/Resolved]
  - Pneumonia [Recovered/Resolved]

NARRATIVE: CASE EVENT DATE: 20161102
